FAERS Safety Report 8487000-X (Version None)
Quarter: 2012Q3

REPORT INFORMATION
  Report Type: 
  Country: None (occurrence: None)
  Receive Date: 20120704
  Receipt Date: 20120629
  Transmission Date: 20120928
  Serious: Yes (Death)
  Sender: FDA-Public Use
  Company Number: PHHY2012BR056745

PATIENT
  Sex: Female

DRUGS (1)
  1. AMLODIPINE [Suspect]

REACTIONS (4)
  - CONDITION AGGRAVATED [None]
  - SEPSIS [None]
  - CUTANEOUS LUPUS ERYTHEMATOSUS [None]
  - URINARY TRACT INFECTION [None]
